FAERS Safety Report 5763233-8 (Version None)
Quarter: 2008Q2

REPORT INFORMATION
  Report Type: 
  Country: None (occurrence: None)
  Receive Date: 20080609
  Receipt Date: 20080530
  Transmission Date: 20081010
  Serious: Yes (Hospitalization)
  Sender: FDA-Public Use
  Company Number: FR-PFIZER INC-2008047039

PATIENT
  Sex: Male

DRUGS (10)
  1. AMLOR [Suspect]
     Indication: HYPERTENSION
     Route: 048
  2. INDAPAMIDE [Interacting]
     Indication: HYPERTENSION
     Route: 048
  3. PERINDOPRIL ERBUMINE [Interacting]
     Indication: HYPERTENSION
     Route: 048
  4. TERCIAN [Interacting]
     Dosage: DAILY DOSE:25DROP-FREQ:EVERY DAY
     Route: 048
  5. DURAGESIC-100 [Concomitant]
     Dosage: TEXT:1 DOSE FORM
     Route: 062
  6. TAHOR [Concomitant]
     Indication: PROPHYLAXIS
     Route: 048
  7. KARDEGIC [Concomitant]
     Indication: PROPHYLAXIS
     Route: 048
  8. LYTOS [Concomitant]
     Indication: PROPHYLAXIS
     Route: 048
  9. RIVOTRIL [Concomitant]
     Dosage: DAILY DOSE:3DROP
     Route: 048
  10. STILNOX [Concomitant]
     Route: 048

REACTIONS (3)
  - DRUG INTERACTION [None]
  - HYPOTENSION [None]
  - MALAISE [None]
